FAERS Safety Report 9115309 (Version 1)
Quarter: 2013Q1

REPORT INFORMATION
  Report Type: Spontaneous
  Country: US (occurrence: None)
  Receive Date: 20130221
  Receipt Date: 20130221
  Transmission Date: 20140127
  Serious: No
  Sender: FDA-Public Use
  Company Number: None

PATIENT
  Age: 83 None
  Sex: Female
  Weight: 74.84 kg

DRUGS (2)
  1. SODIUM FLORIDE, TOOTHPASTE [Suspect]
     Indication: DENTAL DISORDER PROPHYLAXIS
  2. SODIUM FLORIDE, TOOTHPASTE [Suspect]
     Indication: DENTAL CARIES

REACTIONS (3)
  - Drooling [None]
  - Oral disorder [None]
  - Dry mouth [None]
